FAERS Safety Report 6455374-7 (Version None)
Quarter: 2009Q4

REPORT INFORMATION
  Report Type: 
  Country: None (occurrence: None)
  Receive Date: 20091125
  Receipt Date: 20090817
  Transmission Date: 20100525
  Serious: No
  Sender: FDA-Public Use
  Company Number: US-ABBOTT-09P-163-0592610-00

PATIENT
  Sex: Male
  Weight: 6.16 kg

DRUGS (8)
  1. SIMCOR [Suspect]
     Indication: BLOOD CHOLESTEROL INCREASED
     Dosage: 1000/20 DAILY
     Dates: start: 20090201
  2. SIMCOR [Suspect]
     Indication: BLOOD TRIGLYCERIDES INCREASED
  3. LISINOPRIL [Suspect]
     Indication: HYPERTENSION
     Dates: start: 20090501
  4. FENOFIBRATE [Concomitant]
     Indication: DRUG USE FOR UNKNOWN INDICATION
  5. SULINDAC [Concomitant]
     Indication: PSORIATIC ARTHROPATHY
  6. ENBREL [Concomitant]
     Indication: DRUG USE FOR UNKNOWN INDICATION
  7. LOVAZA [Concomitant]
     Indication: DRUG USE FOR UNKNOWN INDICATION
     Dosage: 4 TABS DAILY
  8. ASPIRIN [Concomitant]
     Indication: DRUG USE FOR UNKNOWN INDICATION
     Dosage: DAILY

REACTIONS (5)
  - BLOOD PRESSURE INCREASED [None]
  - FATIGUE [None]
  - FLUSHING [None]
  - HEADACHE [None]
  - MUSCULAR WEAKNESS [None]
